FAERS Safety Report 10355567 (Version 1)
Quarter: 2014Q3

REPORT INFORMATION
  Report Type: Spontaneous
  Country: US (occurrence: None)
  Receive Date: 20140728
  Receipt Date: 20140728
  Transmission Date: 20150326
  Serious: Yes (Hospitalization)
  Sender: FDA-Public Use
  Company Number: UNT-2014-003283

PATIENT
  Age: 71 Year
  Sex: Female
  Weight: 77.1 kg

DRUGS (3)
  1. REVATIO (SILDENAFIL CITRATE) [Concomitant]
  2. REMODULIN [Suspect]
     Active Substance: TREPROSTINIL
     Indication: COR PULMONALE CHRONIC
     Route: 058
     Dates: start: 20130906
  3. TACLEER (BOSENTAN) [Concomitant]

REACTIONS (1)
  - Appendicitis [None]

NARRATIVE: CASE EVENT DATE: 20140625
